FAERS Safety Report 13003286 (Version 3)
Quarter: 2017Q1

REPORT INFORMATION
  Report Type: Spontaneous
  Country: US (occurrence: US)
  Receive Date: 20161206
  Receipt Date: 20170216
  Transmission Date: 20170428
  Serious: Yes (Death, Hospitalization)
  Sender: FDA-Public Use
  Company Number: US-JNJFOC-20161203655

PATIENT
  Sex: Female
  Weight: 78.02 kg

DRUGS (1)
  1. XARELTO [Suspect]
     Active Substance: RIVAROXABAN
     Indication: DEEP VEIN THROMBOSIS
     Route: 048
     Dates: start: 20151211

REACTIONS (3)
  - Febrile neutropenia [Fatal]
  - Lung neoplasm malignant [Fatal]
  - Sepsis [Fatal]
